FAERS Safety Report 17425901 (Version 4)
Quarter: 2020Q2

REPORT INFORMATION
  Report Type: Spontaneous
  Country: FR (occurrence: FR)
  Receive Date: 20200217
  Receipt Date: 20200406
  Transmission Date: 20200713
  Serious: Yes (Other)
  Sender: FDA-Public Use
  Company Number: FR-PFIZER INC-2020063948

PATIENT
  Age: 55 Year
  Sex: Female
  Weight: 55 kg

DRUGS (6)
  1. XELJANZ [Suspect]
     Active Substance: TOFACITINIB CITRATE
     Indication: RHEUMATOID ARTHRITIS
     Dosage: 5 MG, 2X/DAY (FOR 4 MONTHS)
     Dates: start: 20191028, end: 20200311
  2. SPECIAFOLDINE [Concomitant]
     Active Substance: FOLIC ACID
     Indication: RHEUMATOID ARTHRITIS
     Dosage: 15 MG, ONCE WEEKLY
     Route: 048
     Dates: start: 201611
  3. METOJECT [Interacting]
     Active Substance: METHOTREXATE SODIUM
     Indication: RHEUMATOID ARTHRITIS
     Dosage: 15 MG, WEEKLY
     Route: 058
     Dates: start: 201907
  4. TRAMADOL. [Concomitant]
     Active Substance: TRAMADOL
     Indication: RHEUMATOID ARTHRITIS
  5. IXPRIM [Concomitant]
     Active Substance: ACETAMINOPHEN\TRAMADOL HYDROCHLORIDE
     Indication: ACOUSTIC NEUROMA
     Dosage: 1 DF, 4X/DAY
     Route: 048
     Dates: start: 2019
  6. TRAMADOL. [Concomitant]
     Active Substance: TRAMADOL
     Indication: ACOUSTIC NEUROMA
     Dosage: 100 MG, 2X/DAY
     Route: 048
     Dates: start: 2019

REACTIONS (8)
  - Herpes zoster oticus [Recovered/Resolved with Sequelae]
  - Facial paralysis [Recovered/Resolved with Sequelae]
  - Hypoacusis [Unknown]
  - Skin abrasion [Unknown]
  - Drug interaction [Unknown]
  - Pre-existing condition improved [Unknown]
  - Therapeutic response unexpected [Unknown]
  - Vertigo [Recovered/Resolved with Sequelae]

NARRATIVE: CASE EVENT DATE: 20191222
